FAERS Safety Report 8339887-9 (Version None)
Quarter: 2012Q2

REPORT INFORMATION
  Report Type: 
  Country: None (occurrence: None)
  Receive Date: 20120507
  Receipt Date: 20090204
  Transmission Date: 20120825
  Serious: No
  Sender: FDA-Public Use
  Company Number: US-TEVA-2008000612

PATIENT
  Sex: Male
  Weight: 75.818 kg

DRUGS (4)
  1. RITUXAN [Concomitant]
     Indication: CHRONIC LYMPHOCYTIC LEUKAEMIA
  2. TREANDA [Suspect]
     Indication: CHRONIC LYMPHOCYTIC LEUKAEMIA
     Dosage: 200 MILLIGRAM;
     Route: 042
     Dates: start: 20081009, end: 20081010
  3. ALLOPURINOL [Concomitant]
  4. TREANDA [Suspect]
     Route: 042
     Dates: start: 20080101, end: 20080101

REACTIONS (1)
  - RASH PAPULAR [None]
